FAERS Safety Report 13064587 (Version 1)
Quarter: 2016Q4

REPORT INFORMATION
  Report Type: Spontaneous
  Country: US (occurrence: US)
  Receive Date: 20161227
  Receipt Date: 20161227
  Transmission Date: 20170207
  Serious: No
  Sender: FDA-Public Use
  Company Number: US-BAYER-2016-244187

PATIENT
  Sex: Male
  Weight: 103.99 kg

DRUGS (1)
  1. ALEVE [Suspect]
     Active Substance: NAPROXEN SODIUM
     Indication: PAIN
     Dosage: 2 DF, UNK
     Route: 047
     Dates: start: 2016, end: 20161223

REACTIONS (2)
  - Drug ineffective [Unknown]
  - Blood pressure increased [Not Recovered/Not Resolved]
